FAERS Safety Report 7365569-6 (Version None)
Quarter: 2011Q1

REPORT INFORMATION
  Report Type: 
  Country: None (occurrence: None)
  Receive Date: 20110322
  Receipt Date: 20110304
  Transmission Date: 20110831
  Serious: Yes (Hospitalization, Other)
  Sender: FDA-Public Use
  Company Number: US-BAYER-201039429NA

PATIENT
  Sex: Female
  Weight: 58.957 kg

DRUGS (11)
  1. METOPROLOL [Concomitant]
  2. LISINOPRIL [Concomitant]
  3. PROTONIX [Concomitant]
  4. NICOTINE [Concomitant]
  5. NITROGLYCERIN [Concomitant]
  6. YAZ [Suspect]
     Indication: PREMENSTRUAL SYNDROME
  7. YAZ [Suspect]
     Indication: MENSTRUATION IRREGULAR
  8. ATORVASTATIN CALCIUM [Concomitant]
  9. YAZ [Suspect]
     Indication: ACNE
     Dosage: UNK UNK, UNK
     Route: 048
     Dates: start: 20080201, end: 20090201
  10. ASPIRIN [Concomitant]
  11. CLOPIDOGREL [Concomitant]

REACTIONS (4)
  - MYOCARDIAL INFARCTION [None]
  - EMOTIONAL DISORDER [None]
  - MENTAL DISORDER [None]
  - CHEST PAIN [None]
